FAERS Safety Report 23388595 (Version 1)
Quarter: 2024Q1

REPORT INFORMATION
  Report Type: Spontaneous
  Country: None (occurrence: ES)
  Receive Date: 20240110
  Receipt Date: 20240110
  Transmission Date: 20240410
  Serious: Yes (Other)
  Sender: FDA-Public Use
  Company Number: ES-Harrow Eye-2150871

PATIENT
  Age: 67 Year
  Sex: Female

DRUGS (3)
  1. MAXIDEX [Suspect]
     Active Substance: DEXAMETHASONE
     Indication: Product used for unknown indication
  2. CARFILZOMIB [Suspect]
     Active Substance: CARFILZOMIB
  3. SARCLISA [Suspect]
     Active Substance: ISATUXIMAB-IRFC

REACTIONS (3)
  - Plasma cell myeloma [Unknown]
  - Hypertension [Unknown]
  - Therapeutic response decreased [Unknown]
